FAERS Safety Report 7501108-4 (Version None)
Quarter: 2011Q2

REPORT INFORMATION
  Report Type: 
  Country: None (occurrence: None)
  Receive Date: 20110524
  Receipt Date: 20110516
  Transmission Date: 20111010
  Serious: Yes (Other)
  Sender: FDA-Public Use
  Company Number: MX-GENZYME-CERZ-1001900

PATIENT
  Age: 17 Year
  Sex: Female
  Weight: 58 kg

DRUGS (2)
  1. CEREZYME [Suspect]
     Dosage: 40 U/KG, Q2W
     Route: 042
     Dates: start: 19950801
  2. CEREZYME [Suspect]
     Indication: GAUCHER'S DISEASE
     Dosage: 60 U/KG, Q2W
     Route: 042

REACTIONS (2)
  - UTERINE HAEMORRHAGE [None]
  - HYPOVOLAEMIC SHOCK [None]
